FAERS Safety Report 17655315 (Version 1)
Quarter: 2020Q2

REPORT INFORMATION
  Report Type: Spontaneous
  Country: US (occurrence: US)
  Receive Date: 20200409
  Receipt Date: 20200409
  Transmission Date: 20200713
  Serious: Yes (Disabling, Other)
  Sender: FDA-Public Use
  Company Number: None

PATIENT
  Age: 84 Year
  Sex: Female
  Weight: 61.2 kg

DRUGS (5)
  1. ASPIRIN 325MG [Concomitant]
     Active Substance: ASPIRIN
  2. MULTIVITAMIN [Concomitant]
     Active Substance: VITAMINS
  3. PROPANOLOL [Concomitant]
     Active Substance: PROPRANOLOL HYDROCHLORIDE
  4. PROBIOTICS [Concomitant]
     Active Substance: PROBIOTICS NOS
  5. LANSOPRAZOLE DELAYED-RELEASE CAPSULES, USP. 15 MG [Suspect]
     Active Substance: LANSOPRAZOLE
     Indication: GASTROOESOPHAGEAL REFLUX DISEASE
     Dosage: ?          QUANTITY:30 CAPSULE(S);?
     Route: 048
     Dates: start: 20200112, end: 20200114

REACTIONS (7)
  - Product size issue [None]
  - Abdominal pain upper [None]
  - Nausea [None]
  - Product substitution issue [None]
  - Product colour issue [None]
  - Drug ineffective [None]
  - Product contamination physical [None]

NARRATIVE: CASE EVENT DATE: 20200112
